FAERS Safety Report 14765840 (Version 3)
Quarter: 2018Q3

REPORT INFORMATION
  Report Type: Spontaneous
  Country: US (occurrence: US)
  Receive Date: 20180416
  Receipt Date: 20180706
  Transmission Date: 20181010
  Serious: Yes (Other)
  Sender: FDA-Public Use
  Company Number: US-DSJP-DSU-2017-148151

PATIENT

DRUGS (2)
  1. BENICAR [Suspect]
     Active Substance: OLMESARTAN MEDOXOMIL
     Dosage: 40 MG, QD
     Route: 048
     Dates: start: 201104
  2. BENICAR [Suspect]
     Active Substance: OLMESARTAN MEDOXOMIL
     Indication: PRODUCT USED FOR UNKNOWN INDICATION
     Dosage: 20 MG, QD
     Route: 048
     Dates: start: 20070101, end: 20170101

REACTIONS (10)
  - Gastrooesophageal reflux disease [Unknown]
  - Umbilical hernia [Unknown]
  - End stage renal disease [Unknown]
  - Haemorrhoids [Not Recovered/Not Resolved]
  - Impaired gastric emptying [Unknown]
  - Chronic gastritis [Recovering/Resolving]
  - Gastric polyps [Not Recovered/Not Resolved]
  - Diverticulitis [Recovering/Resolving]
  - Diverticulum intestinal [Recovering/Resolving]
  - Erosive oesophagitis [Unknown]

NARRATIVE: CASE EVENT DATE: 20080301
